FAERS Safety Report 10030519 (Version 2)
Quarter: 2014Q1

REPORT INFORMATION
  Report Type: Spontaneous
  Country: US (occurrence: US)
  Receive Date: 20140323
  Receipt Date: 20140323
  Transmission Date: 20141002
  Serious: No
  Sender: FDA-Public Use
  Company Number: US-ALLERGAN-1317282US

PATIENT
  Sex: Female

DRUGS (2)
  1. LATISSE 0.03% [Suspect]
     Indication: GROWTH OF EYELASHES
     Dosage: 1 DROP APPLIED TO EACH EYELID, AS DIRECTED
     Route: 061
     Dates: start: 2013, end: 2013
  2. LATISSE 0.03% [Suspect]
     Dosage: UNK
     Route: 061
     Dates: start: 2012, end: 2012

REACTIONS (2)
  - Blepharal pigmentation [Recovered/Resolved]
  - Skin hyperpigmentation [Recovered/Resolved]
